FAERS Safety Report 25591206 (Version 1)
Quarter: 2025Q3

REPORT INFORMATION
  Report Type: Spontaneous
  Country: US (occurrence: US)
  Receive Date: 20250722
  Receipt Date: 20250722
  Transmission Date: 20251020
  Serious: Yes (Other)
  Sender: DR REDDYS
  Company Number: US-DRL-USA-USA/2025/07/010813

PATIENT
  Sex: Female

DRUGS (1)
  1. NUPERCAINAL [Suspect]
     Active Substance: DIBUCAINE
     Indication: Haemorrhoids
     Route: 065

REACTIONS (2)
  - Cerebrovascular accident [Recovering/Resolving]
  - Visual impairment [Unknown]
